FAERS Safety Report 4784438-9 (Version None)
Quarter: 2005Q3

REPORT INFORMATION
  Report Type: 
  Country: None (occurrence: None)
  Receive Date: 20050929
  Receipt Date: 20050929
  Transmission Date: 20060218
  Serious: Yes (Hospitalization)
  Sender: FDA-Public Use
  Company Number: None

PATIENT
  Age: 63 Year
  Sex: Female
  Weight: 79 kg

DRUGS (1)
  1. PROMETHAZINE [Suspect]
     Indication: NAUSEA
     Dosage: 25 TO 50 MG Q 3 TO 4 HOUR PRN IV BOLUS
     Route: 040
     Dates: start: 20030904, end: 20030905

REACTIONS (2)
  - COMPARTMENT SYNDROME [None]
  - VASCULAR ACCESS COMPLICATION [None]
